FAERS Safety Report 12198159 (Version 1)
Quarter: 2016Q1

REPORT INFORMATION
  Report Type: Spontaneous
  Country: US (occurrence: None)
  Receive Date: 20160321
  Receipt Date: 20160321
  Transmission Date: 20160526
  Serious: No
  Sender: FDA-Public Use
  Company Number: None

PATIENT
  Age: 58 Year
  Sex: Female
  Weight: 90.72 kg

DRUGS (9)
  1. BUTRANS [Suspect]
     Active Substance: BUPRENORPHINE
     Indication: BACK PAIN
     Dosage: 1 PATCH WEEKLY APPLIED AS MEDICATED PATCH TO SKIN
     Dates: start: 20160312, end: 20160317
  2. BUTRANS [Suspect]
     Active Substance: BUPRENORPHINE
     Indication: SPINAL COLUMN STENOSIS
     Dosage: 1 PATCH WEEKLY APPLIED AS MEDICATED PATCH TO SKIN
     Dates: start: 20160312, end: 20160317
  3. NAPROXEN. [Concomitant]
     Active Substance: NAPROXEN
  4. MAGNESIUM [Concomitant]
     Active Substance: MAGNESIUM
  5. PARAFON FORTE [Concomitant]
     Active Substance: CHLORZOXAZONE
  6. CALCIUM [Concomitant]
     Active Substance: CALCIUM
  7. BUTRANS [Suspect]
     Active Substance: BUPRENORPHINE
     Indication: INTERVERTEBRAL DISC PROTRUSION
     Dosage: 1 PATCH WEEKLY APPLIED AS MEDICATED PATCH TO SKIN
     Dates: start: 20160312, end: 20160317
  8. BUTRANS [Suspect]
     Active Substance: BUPRENORPHINE
     Indication: SPONDYLOLISTHESIS
     Dosage: 1 PATCH WEEKLY APPLIED AS MEDICATED PATCH TO SKIN
     Dates: start: 20160312, end: 20160317
  9. ATENOLOL. [Concomitant]
     Active Substance: ATENOLOL

REACTIONS (5)
  - Application site exfoliation [None]
  - Application site pruritus [None]
  - Application site paraesthesia [None]
  - Drug ineffective [None]
  - Application site erythema [None]

NARRATIVE: CASE EVENT DATE: 20160317
